FAERS Safety Report 5866434-3 (Version None)
Quarter: 2008Q3

REPORT INFORMATION
  Report Type: 
  Country: None (occurrence: None)
  Receive Date: 20080902
  Receipt Date: 20080820
  Transmission Date: 20090109
  Serious: Yes (Life-Threatening, Hospitalization, Other)
  Sender: FDA-Public Use
  Company Number: GB-RANBAXY-2008RR-17475

PATIENT

DRUGS (5)
  1. RANITIDINE [Suspect]
     Indication: EPIGASTRIC DISCOMFORT
     Dosage: 50 MG, UNK
     Route: 042
  2. RANITIDINE [Suspect]
     Indication: PANCREATITIS
  3. HYDROCORTISONE [Suspect]
     Dosage: UNK, UNK
     Route: 042
  4. EPINEPHRINE [Concomitant]
     Indication: ANAPHYLACTIC REACTION
     Dosage: UNK,UNK
     Route: 030
  5. OXYGEN [Concomitant]
     Route: 065

REACTIONS (2)
  - CARDIO-RESPIRATORY ARREST [None]
  - DRUG INEFFECTIVE [None]
